FAERS Safety Report 22525680 (Version 1)
Quarter: 2023Q2

REPORT INFORMATION
  Report Type: Spontaneous
  Country: US (occurrence: None)
  Receive Date: 20230605
  Receipt Date: 20230605
  Transmission Date: 20230722
  Serious: No
  Sender: FDA-Public Use
  Company Number: None

PATIENT
  Age: 64 Year
  Sex: Male

DRUGS (7)
  1. SOTYKTU [Suspect]
     Active Substance: DEUCRAVACITINIB
     Indication: Psoriasis
     Dosage: FREQUENCY : DAILY;?
     Route: 048
     Dates: start: 20230526
  2. LOSARTAN [Concomitant]
     Active Substance: LOSARTAN
  3. PRAVASTATIN [Concomitant]
     Active Substance: PRAVASTATIN
  4. TAMSULOSIN [Concomitant]
     Active Substance: TAMSULOSIN
  5. TOLTERODINE [Concomitant]
     Active Substance: TOLTERODINE
  6. BETAMETHASONE DIPROPIONATE [Concomitant]
     Active Substance: BETAMETHASONE DIPROPIONATE
  7. Clobetasol 0.05% topical foam [Concomitant]

REACTIONS (2)
  - Middle insomnia [None]
  - Paraesthesia [None]

NARRATIVE: CASE EVENT DATE: 20230604
